FAERS Safety Report 10537143 (Version 1)
Quarter: 2014Q4

REPORT INFORMATION
  Report Type: Spontaneous
  Country: PL (occurrence: PL)
  Receive Date: 20141022
  Receipt Date: 20141022
  Transmission Date: 20150529
  Serious: Yes (Other)
  Sender: FDA-Public Use
  Company Number: PL-BAXTER-2014BAX061483

PATIENT
  Age: 47 Year
  Sex: Male

DRUGS (2)
  1. PANTOPRAZOLE [Suspect]
     Active Substance: PANTOPRAZOLE SODIUM
     Indication: PRODUCT USED FOR UNKNOWN INDICATION
     Route: 065
  2. HUMAN ALBUMIN 50G/L BAXTER [Suspect]
     Active Substance: ALBUMIN (HUMAN)
     Indication: PRODUCT USED FOR UNKNOWN INDICATION
     Route: 065

REACTIONS (5)
  - Respiratory failure [Recovered/Resolved]
  - Post procedural infection [Recovered/Resolved]
  - Abdominal wound dehiscence [Recovered/Resolved]
  - Pancreatitis acute [Recovered/Resolved]
  - Pancreatic neoplasm [Recovered/Resolved]
